FAERS Safety Report 5780200-9 (Version None)
Quarter: 2008Q2

REPORT INFORMATION
  Report Type: 
  Country: None (occurrence: None)
  Receive Date: 20080620
  Receipt Date: 20080612
  Transmission Date: 20081010
  Serious: Yes (Death, Other)
  Sender: FDA-Public Use
  Company Number: GB-ROCHE-569438

PATIENT
  Sex: Female

DRUGS (4)
  1. CAPECITABINE [Suspect]
     Indication: DRUG USE FOR UNKNOWN INDICATION
     Route: 065
     Dates: start: 20080103
  2. AVASTIN [Suspect]
     Dosage: TOTAL OF 10165MG HAD BEEN GIVEN.
     Route: 065
     Dates: start: 20070517, end: 20071018
  3. AVASTIN [Suspect]
     Dosage: 1110MG PER DOSE - ONLY RECEIVED ONE DOSE.
     Route: 065
     Dates: start: 20080103
  4. PACLITAXEL [Concomitant]

REACTIONS (3)
  - DEATH [None]
  - DISEASE PROGRESSION [None]
  - NASAL SEPTUM PERFORATION [None]
